FAERS Safety Report 15833306 (Version 1)
Quarter: 2019Q1

REPORT INFORMATION
  Report Type: Spontaneous
  Country: BR (occurrence: BR)
  Receive Date: 20190116
  Receipt Date: 20190116
  Transmission Date: 20190417
  Serious: Yes (Other)
  Sender: FDA-Public Use
  Company Number: BR-SA-2018SA387537

PATIENT
  Sex: Female
  Weight: 58 kg

DRUGS (1)
  1. SIMETHICONE (DIMETHICONE) [Suspect]
     Active Substance: DIMETHICONE
     Indication: ABDOMINAL PAIN UPPER
     Dosage: UNK
     Dates: start: 20181212

REACTIONS (3)
  - Ear pain [Unknown]
  - Nasal discomfort [Unknown]
  - Facial paralysis [Not Recovered/Not Resolved]
